FAERS Safety Report 24685011 (Version 1)
Quarter: 2024Q4

REPORT INFORMATION
  Report Type: Spontaneous
  Country: US (occurrence: US)
  Receive Date: 20241202
  Receipt Date: 20241202
  Transmission Date: 20250114
  Serious: Yes (Hospitalization)
  Sender: TAKEDA
  Company Number: US-TAKEDA-2024TUS117876

PATIENT
  Sex: Male
  Weight: 49.89 kg

DRUGS (1)
  1. HYQVIA [Suspect]
     Active Substance: HUMAN IMMUNOGLOBULIN G\HYALURONIDASE (HUMAN RECOMBINANT)
     Indication: Immunodeficiency common variable
     Dosage: 20 GRAM, Q4WEEKS
     Dates: start: 20240714

REACTIONS (4)
  - Gastrointestinal infection [Unknown]
  - Lethargy [Unknown]
  - Infusion site erythema [Unknown]
  - Pyrexia [Recovered/Resolved]
